FAERS Safety Report 19935167 (Version 1)
Quarter: 2021Q4

REPORT INFORMATION
  Report Type: Spontaneous
  Country: US (occurrence: US)
  Receive Date: 20211008
  Receipt Date: 20211008
  Transmission Date: 20220303
  Serious: No
  Sender: FDA-Public Use
  Company Number: US-SA-SAC20211007000636

PATIENT
  Age: 69 Year

DRUGS (1)
  1. PLAVIX [Suspect]
     Active Substance: CLOPIDOGREL BISULFATE
     Indication: Post ablation syndrome
     Dosage: 75 MG, QD
     Dates: start: 20210630

REACTIONS (3)
  - Malaise [Unknown]
  - Fatigue [Unknown]
  - Contusion [Unknown]
